FAERS Safety Report 23924687 (Version 1)
Quarter: 2024Q2

REPORT INFORMATION
  Report Type: Report from Study
  Country: IT (occurrence: IT)
  Receive Date: 20240531
  Receipt Date: 20240531
  Transmission Date: 20240717
  Serious: Yes (Hospitalization, Other)
  Sender: FDA-Public Use
  Company Number: None

PATIENT

DRUGS (13)
  1. PEGASPARGASE [Suspect]
     Active Substance: PEGASPARGASE
     Indication: B-cell type acute leukaemia
     Dosage: 2985 IU, QD
     Route: 042
     Dates: start: 20240318, end: 20240318
  2. VINCRISTINE [Suspect]
     Active Substance: VINCRISTINE
     Indication: B-cell type acute leukaemia
     Dosage: 1.75 MG, QD (ON DAYS 18, 25/03, 02, 08/04/2024)
     Route: 042
     Dates: start: 20240318, end: 20240408
  3. ADRIABLASTINA [Suspect]
     Active Substance: DOXORUBICIN
     Indication: B-cell type acute leukaemia
     Dosage: 35.5 MG, QD
     Route: 042
     Dates: start: 20240318, end: 20240318
  4. DOXORUBICIN [Suspect]
     Active Substance: DOXORUBICIN
     Indication: B-cell type acute leukaemia
     Dosage: 80 MG, QD
     Route: 042
     Dates: start: 20240325, end: 20240402
  5. DOXORUBICIN [Suspect]
     Active Substance: DOXORUBICIN
     Dosage: 14.46 MG, QD
     Route: 042
     Dates: start: 20240408, end: 20240408
  6. DOXORUBICIN [Suspect]
     Active Substance: DOXORUBICIN
     Dosage: 21.34 MG
     Route: 042
     Dates: start: 20240408, end: 20240408
  7. CYCLOPHOSPHAMIDE [Suspect]
     Active Substance: CYCLOPHOSPHAMIDE
     Indication: B-cell type acute leukaemia
     Dosage: 1190 MG, QD
     Route: 042
     Dates: start: 20240426, end: 20240426
  8. CYTARABINE [Suspect]
     Active Substance: CYTARABINE
     Indication: B-cell type acute leukaemia
     Dosage: 89.5 MG, QD (FROM 29/04 TO 02/05/2024 AND FROM 06/05 TO 05/09/2024)
     Route: 042
     Dates: start: 20240429, end: 20240509
  9. DEXAMETHASONE [Concomitant]
     Active Substance: DEXAMETHASONE
     Indication: B-cell type acute leukaemia
     Dosage: 2 TABLETS (2MG) X 3 DOSES/DAY
     Route: 048
     Dates: start: 20240311, end: 20240321
  10. DEXAMETHASONE [Concomitant]
     Active Substance: DEXAMETHASONE
     Dosage: 1 TABLET (2MG) X 3 XX/DAY
     Route: 048
     Dates: start: 20240401, end: 20240403
  11. DEXAMETHASONE [Concomitant]
     Active Substance: DEXAMETHASONE
     Dosage: ? TABLETS (2MG) X 3 DOSES/DAY
     Route: 048
     Dates: start: 20240404, end: 20240406
  12. DEXAMETHASONE [Concomitant]
     Active Substance: DEXAMETHASONE
     Dosage: ? CPS (2MG) X 2 HOURS/DAY
     Route: 048
     Dates: start: 20240407, end: 20240409
  13. ESOMEPRAZOLE [Concomitant]
     Active Substance: ESOMEPRAZOLE
     Indication: Prophylaxis against gastrointestinal ulcer
     Dosage: 40 MG, QD
     Route: 048
     Dates: start: 20240311, end: 20240411

REACTIONS (4)
  - Febrile neutropenia [Recovering/Resolving]
  - Pancytopenia [Not Recovered/Not Resolved]
  - Alanine aminotransferase increased [Recovering/Resolving]
  - Stomatitis [Recovered/Resolved]

NARRATIVE: CASE EVENT DATE: 20240408
